FAERS Safety Report 25063711 (Version 1)
Quarter: 2025Q1

REPORT INFORMATION
  Report Type: Spontaneous
  Country: US (occurrence: None)
  Receive Date: 20250310
  Receipt Date: 20250310
  Transmission Date: 20250409
  Serious: No
  Sender: FDA-CTU
  Company Number: None

PATIENT
  Age: 78 Year
  Sex: Female
  Weight: 65 kg

DRUGS (1)
  1. DOXYCYCLINE [Suspect]
     Active Substance: DOXYCYCLINE
     Dosage: FREQUENCY : TWICE A DAY;?
     Route: 048
     Dates: start: 20241202, end: 20241203

REACTIONS (15)
  - Vomiting [None]
  - Abdominal discomfort [None]
  - Haematemesis [None]
  - Dyspepsia [None]
  - Chest pain [None]
  - Palpitations [None]
  - Dizziness [None]
  - Rash [None]
  - Peripheral swelling [None]
  - Dyspepsia [None]
  - Pneumonia [None]
  - Cardiac failure congestive [None]
  - Oesophagitis [None]
  - Erosive oesophagitis [None]
  - Haematemesis [None]

NARRATIVE: CASE EVENT DATE: 20241203
